FAERS Safety Report 8967140 (Version 1)
Quarter: 2012Q4

REPORT INFORMATION
  Report Type: Report from Study
  Country: BR (occurrence: BR)
  Receive Date: 20121214
  Receipt Date: 20121214
  Transmission Date: 20130627
  Serious: Yes (Other)
  Sender: FDA-Public Use
  Company Number: BR-ABBOTT-12P-020-1019781-00

PATIENT
  Age: 27 None
  Sex: Female
  Weight: 40 kg

DRUGS (8)
  1. HUMIRA [Suspect]
     Indication: CROHN^S DISEASE
     Route: 058
     Dates: start: 20120502
  2. HUMIRA [Suspect]
     Route: 058
  3. AZATIOPRINE [Concomitant]
     Indication: CROHN^S DISEASE
     Dosage: 50 mg daily
     Route: 048
     Dates: start: 20121006
  4. UNKNOWN DRUG REPORTED ^MITEDON^ [Concomitant]
     Indication: PAIN
     Route: 048
     Dates: start: 2007
  5. LEVOMEPROMAZINE MALEATE [Concomitant]
     Indication: SLEEP DISORDER THERAPY
     Dosage: 6 drops daily
     Route: 048
     Dates: start: 2009
  6. CLONAZEPAM [Concomitant]
     Indication: ANXIETY
     Route: 048
     Dates: start: 2002
  7. CLONAZEPAM [Concomitant]
     Indication: ANXIOLYTIC THERAPY
  8. CITALOPRAM [Concomitant]
     Indication: PRODUCT USED FOR UNKNOWN INDICATION
     Dosage: 80 mg daily
     Route: 048
     Dates: start: 2002

REACTIONS (5)
  - Anaemia [Not Recovered/Not Resolved]
  - Drug ineffective [Not Recovered/Not Resolved]
  - Frequent bowel movements [Not Recovered/Not Resolved]
  - Fistula [Unknown]
  - Gastrointestinal disorder [Unknown]
